FAERS Safety Report 9146456 (Version 1)
Quarter: 2013Q1

REPORT INFORMATION
  Report Type: Spontaneous
  Country: US (occurrence: None)
  Receive Date: 20130227
  Receipt Date: 20130227
  Transmission Date: 20140127
  Serious: Yes (Other)
  Sender: FDA-Public Use
  Company Number: None

PATIENT
  Age: 67 Year
  Sex: Male
  Weight: 111 kg

DRUGS (1)
  1. STIVARGA [Suspect]
     Dosage: 160 MG. DAILY

REACTIONS (3)
  - Rash [None]
  - Inflammation [None]
  - Gait disturbance [None]
